FAERS Safety Report 4653004-8 (Version None)
Quarter: 2005Q2

REPORT INFORMATION
  Report Type: 
  Country: None (occurrence: None)
  Receive Date: 20050502
  Receipt Date: 20050502
  Transmission Date: 20051028
  Serious: No
  Sender: FDA-Public Use
  Company Number: None

PATIENT
  Sex: Female
  Weight: 60.5 kg

DRUGS (4)
  1. ETOPOSIDE [Suspect]
     Dosage: 10 MG/KG/DAY CIV ON DAYS 1-4
     Route: 042
     Dates: start: 20041018
  2. CYTARABINE [Suspect]
     Dosage: 2000MG/M2 IV OVER 2 HR EVERY 12 HRS ON DAYS 1-4
     Route: 042
  3. G-CSF [Suspect]
     Dosage: 10 MCG/KG/DAY SC BEGINNING ON DAY 14 UNTIL PBSC COLLETION COMPLETED OR WBCS } 50,000
     Route: 058
  4. GLEEVEC [Suspect]
     Dosage: 400 MG PO BID

REACTIONS (3)
  - ESCHERICHIA BACTERAEMIA [None]
  - HYPERHIDROSIS [None]
  - PYREXIA [None]
